FAERS Safety Report 8713130 (Version 3)
Quarter: 2012Q4

REPORT INFORMATION
  Report Type: 
  Country: JP (occurrence: JP)
  Receive Date: 20120808
  Receipt Date: 20121101
  Transmission Date: 20130627
  Serious: Yes (Hospitalization, Other)
  Sender: FDA-Public Use
  Company Number: JP-AMGEN-JPNSP2012049325

PATIENT
  Age: 84 Year
  Sex: Female
  Weight: 46 kg

DRUGS (10)
  1. ENBREL [Suspect]
     Indication: RHEUMATOID ARTHRITIS
     Dosage: 25 mg, weekly
     Dates: start: 20120515, end: 20120612
  2. ENBREL [Suspect]
     Dosage: 25 mg, qwk
     Dates: start: 20120619, end: 20120710
  3. BACTAR [Suspect]
     Indication: PROPHYLAXIS
     Dosage: UNK
     Dates: start: 20120522, end: 20120605
  4. ARTIST [Concomitant]
     Indication: HYPERTENSION
     Dosage: 2.5 mg, bid
     Dates: start: 20120515
  5. PREDNISOLONE [Concomitant]
     Indication: RHEUMATOID ARTHRITIS
     Dosage: 2 mg, 2x/day
     Route: 048
     Dates: start: 20120515
  6. BUCILLAMINE [Concomitant]
     Dosage: UNK
  7. CELECOX [Concomitant]
     Dosage: UNK
  8. REBAMIPIDE [Concomitant]
     Indication: GASTRITIS PROPHYLAXIS
     Dosage: 100 mg, 2x/day
     Route: 048
     Dates: start: 20120515
  9. ETIZOLAM [Concomitant]
     Indication: INSOMNIA
     Dosage: 0.5 mg, 1x/day
     Route: 048
     Dates: start: 20120515
  10. PURSENNID /00142207/ [Concomitant]
     Indication: CONSTIPATION
     Dosage: 24 mg, 1x/day
     Route: 048
     Dates: start: 20120515

REACTIONS (7)
  - Granulocytopenia [Unknown]
  - Pyrexia [Unknown]
  - Urticaria [Recovered/Resolved]
  - Oropharyngeal pain [Unknown]
  - White blood cell count decreased [Unknown]
  - Mouth ulceration [Unknown]
  - Neutropenia [Recovered/Resolved]
